FAERS Safety Report 17950865 (Version 1)
Quarter: 2020Q2

REPORT INFORMATION
  Report Type: Spontaneous
  Country: GB (occurrence: GB)
  Receive Date: 20200626
  Receipt Date: 20200626
  Transmission Date: 20200714
  Serious: Yes (Other)
  Sender: FDA-Public Use
  Company Number: GB-TEVA-2020-GB-1791719

PATIENT
  Age: 65 Year
  Sex: Female
  Weight: 74.83 kg

DRUGS (5)
  1. CANDESARTAN. [Suspect]
     Active Substance: CANDESARTAN
     Indication: BLOOD PRESSURE INCREASED
     Dosage: 4 MG
     Route: 048
     Dates: start: 202004
  2. PARACETAMOL [Concomitant]
     Active Substance: ACETAMINOPHEN
     Dosage: 6/ 8 DAILY
  3. FISH OIL [Concomitant]
     Active Substance: FISH OIL
  4. AMLODIPINE [Suspect]
     Active Substance: AMLODIPINE BESYLATE
     Indication: BLOOD PRESSURE INCREASED
     Dosage: 20 MG
     Route: 048
     Dates: start: 202004
  5. UBIDECARENONE [Concomitant]
     Active Substance: UBIDECARENONE

REACTIONS (2)
  - Pain in extremity [Recovering/Resolving]
  - Myalgia [Recovering/Resolving]

NARRATIVE: CASE EVENT DATE: 202004
